FAERS Safety Report 17243337 (Version 1)
Quarter: 2019Q4

REPORT INFORMATION
  Report Type: Spontaneous
  Country: US (occurrence: US)
  Receive Date: 20191212
  Receipt Date: 20191212
  Transmission Date: 20200122
  Serious: No
  Sender: FDA-Public Use
  Company Number: None

PATIENT
  Age: 55 Year
  Sex: Female

DRUGS (4)
  1. OCALIVA [Suspect]
     Active Substance: OBETICHOLIC ACID
     Route: 048
     Dates: start: 20190909
  2. HYDROMORPHON [Concomitant]
     Active Substance: HYDROMORPHONE
  3. FLUTICASONE. [Concomitant]
     Active Substance: FLUTICASONE
  4. OXYCODONE [Concomitant]
     Active Substance: OXYCODONE

REACTIONS (1)
  - Nausea [None]

NARRATIVE: CASE EVENT DATE: 20191211
